FAERS Safety Report 6108005-X (Version None)
Quarter: 2009Q1

REPORT INFORMATION
  Report Type: 
  Country: None (occurrence: None)
  Receive Date: 20090305
  Receipt Date: 20090305
  Transmission Date: 20090719
  Serious: Yes (Other)
  Sender: FDA-Public Use
  Company Number: None

PATIENT
  Sex: Female
  Weight: 63.5036 kg

DRUGS (2)
  1. ETANERCEPT 50 MG SURECLICK AMGEN [Suspect]
     Indication: PSORIASIS
     Dosage: 50 MG WEEKLY SQ
     Dates: start: 20081201, end: 20081219
  2. ETANERCEPT 50 MG SURECLICK AMGEN [Suspect]
     Indication: PSORIATIC ARTHROPATHY
     Dosage: 50 MG WEEKLY SQ
     Dates: start: 20081201, end: 20081219

REACTIONS (3)
  - DERMATOMYOSITIS [None]
  - DYSKINESIA OESOPHAGEAL [None]
  - MUSCULAR WEAKNESS [None]
